FAERS Safety Report 9892244 (Version 1)
Quarter: 2014Q1

REPORT INFORMATION
  Report Type: Spontaneous
  Country: US (occurrence: US)
  Receive Date: 20140212
  Receipt Date: 20140212
  Transmission Date: 20141002
  Serious: No
  Sender: FDA-Public Use
  Company Number: US-MALLINCKRODT-T201305157

PATIENT
  Sex: Male
  Weight: 98.87 kg

DRUGS (3)
  1. FENTANYL TRANSDERMAL SYSTEM [Suspect]
     Indication: BACK PAIN
     Dosage: 100 UG/HR, Q72H
     Route: 062
     Dates: start: 2008, end: 201306
  2. OXYCODONE [Concomitant]
     Indication: BREAKTHROUGH PAIN
  3. NEURONTIN [Concomitant]
     Indication: PAIN

REACTIONS (5)
  - Incorrect drug administration duration [Recovered/Resolved]
  - Muscle spasms [Recovered/Resolved]
  - Drug effect decreased [Recovered/Resolved]
  - Product adhesion issue [Recovered/Resolved]
  - Product quality issue [Recovered/Resolved]
